FAERS Safety Report 24231790 (Version 1)
Quarter: 2024Q3

REPORT INFORMATION
  Report Type: Spontaneous
  Country: US (occurrence: US)
  Receive Date: 20240821
  Receipt Date: 20240821
  Transmission Date: 20241016
  Serious: Yes (Hospitalization, Other)
  Sender: BRISTOL MYERS SQUIBB
  Company Number: US-BRISTOL-MYERS SQUIBB COMPANY-2024-128808

PATIENT
  Age: 58 Year
  Sex: Male

DRUGS (3)
  1. NIVOLUMAB [Suspect]
     Active Substance: NIVOLUMAB
     Indication: Skin squamous cell carcinoma metastatic
     Dates: start: 201907
  2. IPILIMUMAB [Suspect]
     Active Substance: IPILIMUMAB
     Indication: Skin squamous cell carcinoma metastatic
     Dates: start: 201907
  3. PREDNISONE [Concomitant]
     Active Substance: PREDNISONE
     Indication: Prophylaxis

REACTIONS (1)
  - Rash [Recovering/Resolving]
